FAERS Safety Report 15650369 (Version 1)
Quarter: 2018Q4

REPORT INFORMATION
  Report Type: Spontaneous
  Country: US (occurrence: US)
  Receive Date: 20181123
  Receipt Date: 20181123
  Transmission Date: 20190205
  Serious: No
  Sender: FDA-Public Use
  Company Number: US-VIVIMED-2018SP006663

PATIENT

DRUGS (2)
  1. LOSARTAN. [Suspect]
     Active Substance: LOSARTAN
     Indication: SICKLE CELL ANAEMIA
  2. LOSARTAN. [Suspect]
     Active Substance: LOSARTAN
     Indication: NEPHROPATHY
     Dosage: UNK
     Route: 048

REACTIONS (2)
  - Off label use [Unknown]
  - Blood creatinine increased [Unknown]
